FAERS Safety Report 15005445 (Version 3)
Quarter: 2021Q1

REPORT INFORMATION
  Report Type: Report from Study
  Country: None (occurrence: JP)
  Receive Date: 20180613
  Receipt Date: 20210312
  Transmission Date: 20210419
  Serious: Yes (Hospitalization, Other)
  Sender: FDA-Public Use
  Company Number: JP-ABBVIE-18P-087-2386731-00

PATIENT
  Age: 50 Year
  Sex: Male
  Weight: 90 kg

DRUGS (1)
  1. LEUPRORELIN [Suspect]
     Active Substance: LEUPROLIDE ACETATE
     Indication: BULBOSPINAL MUSCULAR ATROPHY CONGENITAL
     Dosage: 11.25 MG, Q3MONTHS
     Route: 058
     Dates: start: 20180126

REACTIONS (4)
  - Lipids abnormal [Unknown]
  - Cerebrovascular accident [Unknown]
  - Blood glucose abnormal [Unknown]
  - Cerebral infarction [Recovered/Resolved]

NARRATIVE: CASE EVENT DATE: 20180220
